FAERS Safety Report 13145332 (Version 1)
Quarter: 2017Q1

REPORT INFORMATION
  Report Type: Report from Study
  Country: JP (occurrence: JP)
  Receive Date: 20170124
  Receipt Date: 20170124
  Transmission Date: 20170428
  Serious: Yes (Death, Hospitalization, Disabling)
  Sender: FDA-Public Use
  Company Number: JP-ASTELLAS-2007JP002031

PATIENT
  Age: 46 Year
  Sex: Female

DRUGS (8)
  1. TACROLIMUS. [Suspect]
     Active Substance: TACROLIMUS
     Indication: LUPUS NEPHRITIS
     Route: 048
     Dates: start: 20070403, end: 20080808
  2. NEORAL [Concomitant]
     Active Substance: CYCLOSPORINE
     Indication: LUPUS NEPHRITIS
     Route: 048
  3. PREDNISOLONE. [Concomitant]
     Active Substance: PREDNISOLONE
     Indication: LUPUS NEPHRITIS
     Route: 048
  4. K-SUPPLY [Concomitant]
     Active Substance: POTASSIUM CHLORIDE
     Indication: SJOGREN^S SYNDROME
     Route: 048
     Dates: end: 20070427
  5. MOBIC [Concomitant]
     Active Substance: MELOXICAM
     Indication: SJOGREN^S SYNDROME
     Route: 048
  6. PROTECADIN [Concomitant]
     Active Substance: LAFUTIDINE
     Indication: PROPHYLAXIS
     Route: 048
  7. SELBEX [Concomitant]
     Active Substance: TEPRENONE
     Indication: PROPHYLAXIS
     Route: 048
     Dates: end: 20080115
  8. ALFAROL [Concomitant]
     Active Substance: ALFACALCIDOL
     Indication: PROPHYLAXIS
     Dosage: 0.25 ?G, ONCE DAILY
     Route: 048

REACTIONS (3)
  - Renal disorder [Recovered/Resolved with Sequelae]
  - Beta-N-acetyl-D-glucosaminidase increased [Unknown]
  - Central nervous system lupus [Fatal]

NARRATIVE: CASE EVENT DATE: 20070424
